FAERS Safety Report 5313913-3 (Version None)
Quarter: 2007Q2

REPORT INFORMATION
  Report Type: 
  Country: None (occurrence: None)
  Receive Date: 20070501
  Receipt Date: 20070424
  Transmission Date: 20071010
  Serious: Yes (Hospitalization)
  Sender: FDA-Public Use
  Company Number: 2007UW08167

PATIENT
  Age: 66 Year
  Sex: Female

DRUGS (6)
  1. SEROQUEL [Suspect]
     Indication: BIPOLAR DISORDER
     Route: 048
     Dates: start: 20070101, end: 20070404
  2. ZOLPIDEM [Concomitant]
     Indication: BIPOLAR DISORDER
     Route: 048
     Dates: start: 20061101, end: 20070404
  3. CLONAZEPAM [Concomitant]
     Indication: BIPOLAR DISORDER
     Route: 048
     Dates: start: 20061101, end: 20070404
  4. NEXIUM [Concomitant]
     Route: 048
  5. CARBOLITHIUM [Concomitant]
     Indication: BIPOLAR DISORDER
     Route: 048
  6. OXOCARBAZEPINA [Concomitant]

REACTIONS (1)
  - PANCYTOPENIA [None]
